FAERS Safety Report 17778830 (Version 4)
Quarter: 2020Q4

REPORT INFORMATION
  Report Type: Spontaneous
  Country: US (occurrence: US)
  Receive Date: 20200513
  Receipt Date: 20201222
  Transmission Date: 20210113
  Serious: Yes (Other)
  Sender: FDA-Public Use
  Company Number: US-PFIZER INC-2020190870

PATIENT
  Age: 69 Year
  Sex: Female

DRUGS (1)
  1. XELJANZ XR [Suspect]
     Active Substance: TOFACITINIB CITRATE
     Indication: RHEUMATOID ARTHRITIS
     Dosage: 11 MG, DAILY
     Route: 048
     Dates: start: 201907

REACTIONS (10)
  - Cyst [Unknown]
  - Weight decreased [Unknown]
  - Disease recurrence [Unknown]
  - Skin fragility [Unknown]
  - Weight decreased [Recovered/Resolved]
  - Cyst rupture [Unknown]
  - Grip strength decreased [Unknown]
  - Wound [Recovered/Resolved]
  - Musculoskeletal discomfort [Unknown]
  - Musculoskeletal stiffness [Unknown]

NARRATIVE: CASE EVENT DATE: 202004
